FAERS Safety Report 7245327-3 (Version None)
Quarter: 2011Q1

REPORT INFORMATION
  Report Type: 
  Country: None (occurrence: None)
  Receive Date: 20110126
  Receipt Date: 20110120
  Transmission Date: 20110831
  Serious: Yes (Other)
  Sender: FDA-Public Use
  Company Number: JP-ROCHE-753950

PATIENT
  Sex: Female
  Weight: 53 kg

DRUGS (4)
  1. LIPITOR [Concomitant]
     Route: 048
     Dates: start: 20071110
  2. CALONAL [Concomitant]
     Route: 048
     Dates: start: 20110111, end: 20110114
  3. BROCIN [Concomitant]
     Route: 048
     Dates: start: 20110111, end: 20110114
  4. TAMIFLU [Suspect]
     Indication: INFLUENZA
     Dosage: DOSAGE UNCERTAIN, FREQUENCY REPORTED AS 2/5 DAYS
     Route: 048
     Dates: start: 20110111, end: 20110111

REACTIONS (2)
  - HALLUCINATION [None]
  - ABNORMAL BEHAVIOUR [None]
